FAERS Safety Report 7973242-6 (Version None)
Quarter: 2011Q4

REPORT INFORMATION
  Report Type: 
  Country: None (occurrence: None)
  Receive Date: 20111213
  Receipt Date: 20111128
  Transmission Date: 20120403
  Serious: Yes (Other)
  Sender: FDA-Public Use
  Company Number: PHEH2011US010314

PATIENT
  Sex: Female

DRUGS (2)
  1. RECLAST [Suspect]
  2. FOSAMAX [Suspect]

REACTIONS (3)
  - EMOTIONAL DISTRESS [None]
  - MULTIPLE FRACTURES [None]
  - FEMUR FRACTURE [None]
